FAERS Safety Report 23919248 (Version 7)
Quarter: 2025Q4

REPORT INFORMATION
  Report Type: Report from Study
  Country: EU (occurrence: EU)
  Receive Date: 20240530
  Receipt Date: 20251113
  Transmission Date: 20260117
  Serious: Yes (Hospitalization, Other)
  Sender: AUROBINDO
  Company Number: EU-MEDO2008-000727

PATIENT
  Age: 39 Year
  Sex: Male

DRUGS (19)
  1. PREGABALIN [Suspect]
     Active Substance: PREGABALIN
     Indication: Generalised anxiety disorder
     Dosage: 300 MILLIGRAM (CPS 2-2-1 SCHEDULE)
     Route: 065
  2. PREGABALIN [Suspect]
     Active Substance: PREGABALIN
     Indication: Personality disorder
     Dosage: 600 MILLIGRAM (REDUCED TO 600 MG WITHIN 14 DAYS)
     Route: 065
  3. PREGABALIN [Suspect]
     Active Substance: PREGABALIN
     Dosage: 600 MILLIGRAM, ONCE A DAY (IN TWO DIVIDED DOSES, ABOUT 20 MONTHS)
     Route: 065
     Dates: start: 202301
  4. PREGABALIN [Suspect]
     Active Substance: PREGABALIN
     Dosage: 2400 MILLIGRAM, ONCE A DAY (BY SNIFFING)
     Route: 065
  5. PREGABALIN [Suspect]
     Active Substance: PREGABALIN
     Dosage: 1500 MILLIGRAM
     Route: 065
  6. PREGABALIN [Suspect]
     Active Substance: PREGABALIN
     Dosage: 600 MILLIGRAM, TWO TIMES A DAY (IN TWO PARTIAL DOSES)
     Route: 065
  7. PREGABALIN [Suspect]
     Active Substance: PREGABALIN
     Indication: Generalised anxiety disorder
     Dosage: 300 MILLIGRAM, ONCE A DAY (REDUCE THE SUPRAMAXIMAL DOSES - REDUCTION)
     Route: 065
  8. PREGABALIN [Suspect]
     Active Substance: PREGABALIN
     Indication: Personality disorder
  9. PREGABALIN [Suspect]
     Active Substance: PREGABALIN
     Indication: Generalised anxiety disorder
     Dosage: 2400 MILLIGRAM, ONCE A DAY (ONE MORNING DOSE, ALSO BY SNIFFING, ARBITRARILY INCREASED THE DOSE)
     Route: 065
     Dates: start: 202301
  10. PREGABALIN [Suspect]
     Active Substance: PREGABALIN
     Indication: Personality disorder
  11. TRAMADOL [Suspect]
     Active Substance: TRAMADOL
     Indication: Impulsive behaviour
     Dosage: UNK
     Route: 065
  12. TRAMADOL [Suspect]
     Active Substance: TRAMADOL
     Indication: Antisocial behaviour
  13. TRAMADOL [Suspect]
     Active Substance: TRAMADOL
     Indication: Narcissistic personality disorder
  14. CLONAZEPAM [Suspect]
     Active Substance: CLONAZEPAM
     Indication: Impulsive behaviour
     Dosage: 6 MILLIGRAM, ONCE A DAY
     Route: 065
  15. CLONAZEPAM [Suspect]
     Active Substance: CLONAZEPAM
     Indication: Antisocial behaviour
  16. CLONAZEPAM [Suspect]
     Active Substance: CLONAZEPAM
     Indication: Narcissistic personality disorder
  17. AMPHETAMINE [Concomitant]
     Active Substance: AMPHETAMINE
     Indication: Impulsive behaviour
     Dosage: UNK
     Route: 065
  18. AMPHETAMINE [Concomitant]
     Active Substance: AMPHETAMINE
     Indication: Antisocial behaviour
  19. AMPHETAMINE [Concomitant]
     Active Substance: AMPHETAMINE
     Indication: Narcissistic personality disorder

REACTIONS (12)
  - Drug dependence [Not Recovered/Not Resolved]
  - Conjunctival hyperaemia [Not Recovered/Not Resolved]
  - Withdrawal syndrome [Not Recovered/Not Resolved]
  - Anxiety [Not Recovered/Not Resolved]
  - Insomnia [Not Recovered/Not Resolved]
  - Hyperhidrosis [Not Recovered/Not Resolved]
  - Aggression [Unknown]
  - Tension [Not Recovered/Not Resolved]
  - Intentional overdose [Recovered/Resolved]
  - Psychiatric decompensation [Recovered/Resolved]
  - Intentional product use issue [Unknown]
  - Behaviour disorder [Unknown]
